FAERS Safety Report 5082516-0 (Version None)
Quarter: 2006Q3

REPORT INFORMATION
  Report Type: 
  Country: None (occurrence: None)
  Receive Date: 20060814
  Receipt Date: 20060731
  Transmission Date: 20061208
  Serious: Yes (Death)
  Sender: FDA-Public Use
  Company Number: 2006S1007162

PATIENT
  Age: 50 Year
  Sex: Male

DRUGS (3)
  1. FENTANYL TRANSDERMAL SYSTEM [Suspect]
     Dosage: 200 UG/HR;TDER
     Route: 062
  2. HYDROCODONE BITARTRATE + ACETAMINOPHEN [Suspect]
     Dosage: PO
     Route: 048
  3. ALPRAZOLAM [Suspect]
     Dosage: PO
     Route: 048

REACTIONS (3)
  - DRUG TOXICITY [None]
  - INCORRECT DOSE ADMINISTERED [None]
  - TOXICOLOGIC TEST ABNORMAL [None]
